FAERS Safety Report 5025739-9 (Version None)
Quarter: 2006Q2

REPORT INFORMATION
  Report Type: 
  Country: None (occurrence: None)
  Receive Date: 20060427
  Receipt Date: 20051117
  Transmission Date: 20061013
  Serious: Yes (Disabling, Congenital Anomaly)
  Sender: FDA-Public Use
  Company Number: 2005132612

PATIENT
  Sex: Female

DRUGS (1)
  1. ZITHROMAX [Suspect]
     Indication: SINUSITIS
     Dosage: 1 TABLET (1 IN 1 D)

REACTIONS (2)
  - DEAFNESS [None]
  - DRUG EXPOSURE DURING PREGNANCY [None]
